FAERS Safety Report 16393947 (Version 1)
Quarter: 2019Q3

REPORT INFORMATION
  Report Type: Spontaneous
  Country: US (occurrence: US)
  Receive Date: 20190603
  Receipt Date: 20190603
  Transmission Date: 20191004
  Serious: Yes (Other)
  Sender: FDA-Public Use
  Company Number: None

PATIENT
  Age: 75 Year
  Sex: Female
  Weight: 51.57 kg

DRUGS (22)
  1. VALACYCLOVIR HCL [Concomitant]
     Active Substance: VALACYCLOVIR HYDROCHLORIDE
  2. OCUVITE [Concomitant]
     Active Substance: VITAMINS
  3. ZOLPIDEM TARTRATE. [Concomitant]
     Active Substance: ZOLPIDEM TARTRATE
  4. CYCLOSPORINE MODIFIED [Concomitant]
     Active Substance: CYCLOSPORINE
  5. ACYCLOVIR. [Concomitant]
     Active Substance: ACYCLOVIR
  6. GENGRAF [Concomitant]
     Active Substance: CYCLOSPORINE
  7. DILTIAZEM CD [Concomitant]
     Active Substance: DILTIAZEM
  8. FUROSEMIDE. [Concomitant]
     Active Substance: FUROSEMIDE
  9. TRAMADOL HCL [Concomitant]
     Active Substance: TRAMADOL HYDROCHLORIDE
  10. OMEPRAZOLE. [Concomitant]
     Active Substance: OMEPRAZOLE
  11. VITAMIN C [Concomitant]
     Active Substance: ASCORBIC ACID
  12. VITAMIN D (ERGOCALCIFEROL) [Concomitant]
     Active Substance: ERGOCALCIFEROL
  13. LYRICA [Concomitant]
     Active Substance: PREGABALIN
  14. IBRANCE [Suspect]
     Active Substance: PALBOCICLIB
     Indication: BREAST CANCER FEMALE
     Route: 048
     Dates: start: 20190418, end: 20190524
  15. ACETAMINOPHEN ER [Concomitant]
     Active Substance: ACETAMINOPHEN
  16. CALCIUM CARBONATE. [Concomitant]
     Active Substance: CALCIUM CARBONATE
  17. COLCRYS [Concomitant]
     Active Substance: COLCHICINE
  18. PROCHLORPERAZINE. [Concomitant]
     Active Substance: PROCHLORPERAZINE
  19. LETROZOLE. [Concomitant]
     Active Substance: LETROZOLE
  20. ALLOPURINOL. [Concomitant]
     Active Substance: ALLOPURINOL
  21. ASPIRIN ADULT [Concomitant]
  22. PREDNISONE. [Concomitant]
     Active Substance: PREDNISONE

REACTIONS (1)
  - Paraneoplastic syndrome [None]
